FAERS Safety Report 7974421-4 (Version None)
Quarter: 2011Q4

REPORT INFORMATION
  Report Type: 
  Country: None (occurrence: None)
  Receive Date: 20111213
  Receipt Date: 20111208
  Transmission Date: 20120403
  Serious: Yes (Hospitalization)
  Sender: FDA-Public Use
  Company Number: DE-B.I. PHARMACEUTICALS,INC./RIDGEFIELD-2011-DE-06736DE

PATIENT
  Sex: Female

DRUGS (3)
  1. BISOPROLOL FUMARATE [Concomitant]
     Dosage: 1 ANZ
  2. PRADAXA [Suspect]
     Indication: ATRIAL FIBRILLATION
     Dosage: 220 MG
  3. TORSEMIDE [Concomitant]
     Dosage: 0.5 ANZ

REACTIONS (3)
  - HAEMATURIA [None]
  - BLADDER MASS [None]
  - CEREBRAL INFARCTION [None]
